FAERS Safety Report 6435179-3 (Version None)
Quarter: 2009Q4

REPORT INFORMATION
  Report Type: 
  Country: None (occurrence: None)
  Receive Date: 20091110
  Receipt Date: 20091026
  Transmission Date: 20100525
  Serious: Yes (Other)
  Sender: FDA-Public Use
  Company Number: CA-GENENTECH-293439

PATIENT
  Age: 13 Year
  Sex: Female

DRUGS (1)
  1. AVASTIN [Suspect]
     Indication: VON HIPPEL-LINDAU DISEASE
     Dosage: UNK
     Route: 031
     Dates: start: 20070226, end: 20070628

REACTIONS (1)
  - RETINAL NEOVASCULARISATION [None]
